FAERS Safety Report 23769890 (Version 1)
Quarter: 2024Q2

REPORT INFORMATION
  Report Type: Spontaneous
  Country: US (occurrence: US)
  Receive Date: 20240422
  Receipt Date: 20240422
  Transmission Date: 20240716
  Serious: No
  Sender: FDA-Public Use
  Company Number: US-BAYER-2024A055258

PATIENT
  Sex: Male

DRUGS (4)
  1. ALEVE [Suspect]
     Active Substance: NAPROXEN SODIUM
     Dosage: 3 DF
     Route: 065
     Dates: start: 2020
  2. ASPIRIN [Suspect]
     Active Substance: ASPIRIN
     Indication: Pain
  3. IBUPROFEN [Concomitant]
     Active Substance: IBUPROFEN
     Indication: Pain
  4. CAFFEINE [Concomitant]
     Active Substance: CAFFEINE
     Indication: Pain

REACTIONS (2)
  - Therapeutic product effect incomplete [Recovering/Resolving]
  - Contraindicated product administered [Recovering/Resolving]

NARRATIVE: CASE EVENT DATE: 20200101
